FAERS Safety Report 5677630-2 (Version None)
Quarter: 2008Q1

REPORT INFORMATION
  Report Type: 
  Country: None (occurrence: None)
  Receive Date: 20080324
  Receipt Date: 20080312
  Transmission Date: 20080703
  Serious: Yes (Other)
  Sender: FDA-Public Use
  Company Number: US-ELI_LILLY_AND_COMPANY-US200802006285

PATIENT
  Sex: Female

DRUGS (1)
  1. EVISTA [Suspect]
     Dates: start: 19940101, end: 19990101

REACTIONS (2)
  - BREAST CANCER [None]
  - NEOPLASM MALIGNANT [None]
